FAERS Safety Report 10254577 (Version 1)
Quarter: 2014Q2

REPORT INFORMATION
  Report Type: Spontaneous
  Country: BD (occurrence: BD)
  Receive Date: 20140624
  Receipt Date: 20140624
  Transmission Date: 20141212
  Serious: Yes (Other)
  Sender: FDA-Public Use
  Company Number: BD-ROCHE-1423452

PATIENT
  Age: 35 Year
  Sex: Female

DRUGS (1)
  1. MABTHERA [Suspect]
     Indication: NON-HODGKIN^S LYMPHOMA
     Dosage: 6 X 500MG
     Route: 042
     Dates: start: 20140526

REACTIONS (1)
  - Loss of consciousness [Not Recovered/Not Resolved]
